FAERS Safety Report 20750517 (Version 2)
Quarter: 2022Q2

REPORT INFORMATION
  Report Type: Spontaneous
  Country: IT (occurrence: IT)
  Receive Date: 20220426
  Receipt Date: 20220509
  Transmission Date: 20220721
  Serious: Yes (Hospitalization, Other)
  Sender: FDA-Public Use
  Company Number: IT-009507513-2204ITA001873

PATIENT
  Age: 73 Year
  Sex: Female

DRUGS (3)
  1. CARBOPLATIN [Suspect]
     Active Substance: CARBOPLATIN
     Indication: Lung adenocarcinoma stage IV
     Dosage: 1 UNK, EVERY 3 WEEKS (5 AUC Q3W)
     Dates: start: 202103, end: 2021
  2. PEMETREXED [Suspect]
     Active Substance: PEMETREXED
     Indication: Lung adenocarcinoma stage IV
     Dosage: 500 MG/M2, EVERY 3 WEEKS (Q3W)
     Dates: start: 202103
  3. PEMBROLIZUMAB [Suspect]
     Active Substance: PEMBROLIZUMAB
     Indication: Lung adenocarcinoma stage IV
     Dosage: 200 MG, EVERY 3 WEEKS (Q3W)
     Dates: start: 202103

REACTIONS (9)
  - Toxicity to various agents [Unknown]
  - Chronic kidney disease [Unknown]
  - Interstitial lung disease [Unknown]
  - Blood creatinine increased [Unknown]
  - Immune-mediated adverse reaction [Unknown]
  - Dyspnoea [Unknown]
  - Cough [Unknown]
  - Renal failure [Unknown]
  - Neoplasm progression [Unknown]

NARRATIVE: CASE EVENT DATE: 20210101
